FAERS Safety Report 17358237 (Version 1)
Quarter: 2020Q1

REPORT INFORMATION
  Report Type: Spontaneous
  Country: US (occurrence: US)
  Receive Date: 20200131
  Receipt Date: 20200131
  Transmission Date: 20200409
  Serious: No
  Sender: FDA-Public Use
  Company Number: US-B.I. PHARMACEUTICALS,INC./RIDGEFIELD-2020-US-005001

PATIENT
  Age: 73 Year
  Sex: Female

DRUGS (2)
  1. ELIQUIS [Concomitant]
     Active Substance: APIXABAN
     Indication: THROMBOSIS
     Dosage: 5MG ONCE DAILY
     Route: 065
  2. STIOLTO RESPIMAT [Suspect]
     Active Substance: OLODATEROL HYDROCHLORIDE\TIOTROPIUM BROMIDE MONOHYDRATE
     Indication: CHRONIC OBSTRUCTIVE PULMONARY DISEASE
     Dosage: 2 PUFFS ONCE DAILY
     Route: 065
     Dates: start: 201907

REACTIONS (1)
  - Dyspnoea [Not Recovered/Not Resolved]

NARRATIVE: CASE EVENT DATE: 20200125
